FAERS Safety Report 13156104 (Version 1)
Quarter: 2017Q1

REPORT INFORMATION
  Report Type: Spontaneous
  Country: HU (occurrence: HU)
  Receive Date: 20170126
  Receipt Date: 20170126
  Transmission Date: 20170428
  Serious: Yes (Hospitalization, Other)
  Sender: FDA-Public Use
  Company Number: HU-PFIZER INC-2017035753

PATIENT
  Age: 66 Year
  Sex: Female

DRUGS (5)
  1. ASA [Concomitant]
     Active Substance: ASPIRIN
     Dosage: 1 DF, 1X1 TABLET
  2. RILMENIDINE [Suspect]
     Active Substance: RILMENIDINE
     Dosage: 1 DF, IN THE EVENING
  3. RAMIPRIL HCT [Suspect]
     Active Substance: HYDROCHLOROTHIAZIDE\RAMIPRIL
     Dosage: 1X/DAY (IN THE MORNING 5/25 MG)
  4. AMLODIPINE BESILATE [Suspect]
     Active Substance: AMLODIPINE BESYLATE
     Dosage: 5 MG, 2X/DAY (2X5 MG)
  5. TRIMETAZIDINE [Concomitant]
     Active Substance: TRIMETAZIDINE

REACTIONS (2)
  - Blood pressure inadequately controlled [Recovered/Resolved]
  - Left ventricular hypertrophy [Unknown]
